FAERS Safety Report 5441901-5 (Version None)
Quarter: 2007Q3

REPORT INFORMATION
  Report Type: 
  Country: None (occurrence: None)
  Receive Date: 20070830
  Receipt Date: 20070830
  Transmission Date: 20080115
  Serious: Yes (Death, Hospitalization)
  Sender: FDA-Public Use
  Company Number: None

PATIENT
  Sex: Female
  Weight: 89 kg

DRUGS (3)
  1. CYTARABINE [Suspect]
     Dosage: 1013.55 MG
     Dates: end: 20070813
  2. DAUNORUBICIN HCL [Suspect]
     Dosage: 501 MG
     Dates: end: 20070809
  3. ETOPOSIDE [Suspect]
     Dosage: 555 MG
     Dates: end: 20070809

REACTIONS (9)
  - BLOOD BILIRUBIN INCREASED [None]
  - FEBRILE NEUTROPENIA [None]
  - HAEMODIALYSIS [None]
  - HYPOTENSION [None]
  - MULTI-ORGAN FAILURE [None]
  - PNEUMONIA [None]
  - RENAL TUBULAR NECROSIS [None]
  - RESPIRATORY FAILURE [None]
  - SEPSIS [None]
